FAERS Safety Report 17696790 (Version 1)
Quarter: 2020Q2

REPORT INFORMATION
  Report Type: Spontaneous
  Country: ES (occurrence: ES)
  Receive Date: 20200423
  Receipt Date: 20200423
  Transmission Date: 20200714
  Serious: Yes (Other)
  Sender: FDA-Public Use
  Company Number: ES-AUROBINDO-AUR-APL-2020-019892

PATIENT
  Age: 39 Year
  Sex: Female
  Weight: 70 kg

DRUGS (7)
  1. METFORMIN [Suspect]
     Active Substance: METFORMIN HYDROCHLORIDE
     Indication: PRODUCT USED FOR UNKNOWN INDICATION
     Dosage: UNK
  2. INSULIN GLARGINE [Suspect]
     Active Substance: INSULIN GLARGINE
     Indication: TYPE 2 DIABETES MELLITUS
     Dosage: 43 INTERNATIONAL UNIT
     Route: 058
     Dates: start: 2017
  3. LYXUMIA [Suspect]
     Active Substance: LIXISENATIDE
     Indication: TYPE 2 DIABETES MELLITUS
     Dosage: UNK, ONCE A DAY (AT NIGHT)
     Route: 058
  4. HUMALOG [Suspect]
     Active Substance: INSULIN LISPRO
     Dosage: UNK
     Route: 065
     Dates: start: 20200406
  5. INSULIN GLARGINE [Suspect]
     Active Substance: INSULIN GLARGINE
     Dosage: 40 INTERNATIONAL UNIT
     Route: 058
     Dates: start: 20200406
  6. HUMALOG [Suspect]
     Active Substance: INSULIN LISPRO
     Indication: TYPE 2 DIABETES MELLITUS
     Dosage: BID (MID DAY AND DINNER)
     Route: 058
  7. METFORMIN [Suspect]
     Active Substance: METFORMIN HYDROCHLORIDE
     Dosage: UNK
     Route: 065

REACTIONS (11)
  - Drug ineffective [Unknown]
  - Blood glucose decreased [Recovered/Resolved]
  - Gastrooesophageal reflux disease [Recovered/Resolved]
  - Blood glucose increased [Not Recovered/Not Resolved]
  - Glycosylated haemoglobin increased [Unknown]
  - Dizziness [Recovered/Resolved]
  - Frequent bowel movements [Recovered/Resolved]
  - Hypoglycaemia [Recovered/Resolved]
  - Insomnia [Unknown]
  - Insulin resistance [Recovering/Resolving]
  - Aphonia [Recovered/Resolved]

NARRATIVE: CASE EVENT DATE: 201905
